FAERS Safety Report 6904230-6 (Version None)
Quarter: 2010Q3

REPORT INFORMATION
  Report Type: 
  Country: None (occurrence: None)
  Receive Date: 20100804
  Receipt Date: 20090413
  Transmission Date: 20110219
  Serious: Yes (Other)
  Sender: FDA-Public Use
  Company Number: US-PFIZER INC-2009172763

PATIENT
  Sex: Female

DRUGS (1)
  1. LYRICA [Suspect]

REACTIONS (5)
  - BALANCE DISORDER [None]
  - DIPLOPIA [None]
  - DYSARTHRIA [None]
  - GAIT DISTURBANCE [None]
  - OEDEMA PERIPHERAL [None]
